FAERS Safety Report 7659562-3 (Version None)
Quarter: 2011Q3

REPORT INFORMATION
  Report Type: 
  Country: None (occurrence: None)
  Receive Date: 20110805
  Receipt Date: 20110729
  Transmission Date: 20111222
  Serious: Yes (Death)
  Sender: FDA-Public Use
  Company Number: US-ALEXION-A201100516

PATIENT
  Age: 56 Year
  Sex: Male

DRUGS (4)
  1. SOLIRIS [Suspect]
     Indication: HAEMOLYTIC URAEMIC SYNDROME
     Dosage: 900 MG, QW
     Route: 042
     Dates: start: 20110330, end: 20110401
  2. ROCEPHIN [Concomitant]
  3. LEVOPHED [Concomitant]
  4. PROTONIX [Concomitant]

REACTIONS (2)
  - RESPIRATORY FAILURE [None]
  - PNEUMOTHORAX [None]
